FAERS Safety Report 25939760 (Version 1)
Quarter: 2025Q4

REPORT INFORMATION
  Report Type: Spontaneous
  Country: CA (occurrence: CA)
  Receive Date: 20251020
  Receipt Date: 20251020
  Transmission Date: 20260118
  Serious: Yes (Other)
  Sender: CELLTRION
  Company Number: CA-PFIZER INC-202400294856

PATIENT

DRUGS (12)
  1. INFLIXIMAB [Suspect]
     Active Substance: INFLIXIMAB
     Indication: Crohn^s disease
     Dosage: 600.0 MILLIGRAM
     Route: 042
  2. INFLIXIMAB [Suspect]
     Active Substance: INFLIXIMAB
     Dosage: 600.0 MILLIGRAM
     Route: 042
  3. INFLIXIMAB [Suspect]
     Active Substance: INFLIXIMAB
     Dosage: 600.0 MILLIGRAM
     Route: 042
  4. INFLIXIMAB [Suspect]
     Active Substance: INFLIXIMAB
     Dosage: 10.0 MG/KG
     Route: 042
  5. INFLIXIMAB [Suspect]
     Active Substance: INFLIXIMAB
     Dosage: 600.0 MILLIGRAM
     Route: 042
  6. INFLECTRA [Suspect]
     Active Substance: INFLIXIMAB-DYYB
     Indication: Crohn^s disease
     Dosage: 10 MG/KG, AT 0, 2, 6, THEN EVERY 8 WEEKS (WEEK 0 DOSE AT HOSPITAL)
     Route: 042
     Dates: start: 20241029, end: 20241029
  7. INFLECTRA [Suspect]
     Active Substance: INFLIXIMAB-DYYB
     Dosage: 600 MG, AT WEEK 2, 6 AND THEN Q 8 WEEKS
     Route: 042
     Dates: start: 20241109
  8. INFLECTRA [Suspect]
     Active Substance: INFLIXIMAB-DYYB
     Dosage: 600 MG, WEEK 6 INDUCTION (600 MG, AT WEEK 2, 6 AND THEN Q 8 WEEKS)
     Route: 042
     Dates: start: 20241209
  9. INFLECTRA [Suspect]
     Active Substance: INFLIXIMAB-DYYB
     Dosage: 600 MG, EVERY 8 WEEKS   (600 MG, AT WEEK 2, 6 AND THEN Q 8 WEEKS)
     Route: 042
     Dates: start: 20250204
  10. INFLECTRA [Suspect]
     Active Substance: INFLIXIMAB-DYYB
     Dosage: 600 MG, EVERY 8 WEEKS   (600 MG, AT WEEK 2, 6 AND THEN Q 8 WEEKS)
     Route: 042
     Dates: start: 20250401
  11. INFLECTRA [Suspect]
     Active Substance: INFLIXIMAB-DYYB
     Dosage: 600 MG, 8 WEEKS   (600 MG, AT WEEK 2, 6 AND THEN Q 8 WEEKS)
     Route: 042
     Dates: start: 20250527
  12. PREDNISONE [Concomitant]
     Active Substance: PREDNISONE
     Dosage: UNK

REACTIONS (7)
  - Clostridium difficile infection [Recovering/Resolving]
  - Condition aggravated [Recovering/Resolving]
  - Off label use [Recovering/Resolving]
  - Off label use [Recovering/Resolving]
  - Arthralgia [Not Recovered/Not Resolved]
  - Overdose [Unknown]
  - Intentional product use issue [Unknown]

NARRATIVE: CASE EVENT DATE: 20240101
